FAERS Safety Report 4663845-9 (Version None)
Quarter: 2005Q2

REPORT INFORMATION
  Report Type: 
  Country: None (occurrence: None)
  Receive Date: 20050516
  Receipt Date: 20050503
  Transmission Date: 20051028
  Serious: Yes (Hospitalization)
  Sender: FDA-Public Use
  Company Number: 2005071929

PATIENT
  Age: 63 Year
  Sex: Male

DRUGS (12)
  1. METHYLPREDNISOLONE ACETATE [Suspect]
     Indication: PYODERMA GANGRENOSUM
     Dosage: 1 GRAM (DAILY FOR 3 DAYS), INTRAVENOUS
     Route: 042
  2. METHOTREXATE [Suspect]
     Indication: PYODERMA GANGRENOSUM
     Dosage: 7.5 MG (WEEKLY), ORAL
     Route: 048
  3. PREDNISONE [Suspect]
     Indication: PYODERMA GANGRENOSUM
     Dosage: 80 MG, ORAL
     Route: 048
  4. IMMUNE GLOBULIN INTRAVENOUS (HUMAN) [Suspect]
     Indication: PYODERMA GANGRENOSUM
     Dosage: 2000 MG/KG (CYCLIC), INTRAVENOUS
     Route: 042
  5. CLOBETASOL (CLOBETASOL) [Suspect]
     Indication: PYODERMA GANGRENOSUM
     Dosage: TOPICAL
     Route: 061
  6. CYCLOSPORINE [Suspect]
     Indication: PYODERMA GANGRENOSUM
     Dosage: 5 MG/KG
  7. THALIDOMIDE (THALIDOMIDE) [Concomitant]
  8. TRIAMCINOLONE ACETONIDE [Concomitant]
  9. MYCOPHENOLATE MOFETIL (MYCOPHENOLATE MOFETIL) [Concomitant]
  10. CLOFAZIMINE (CLOFAZIMINE) [Concomitant]
  11. FILGRASTIM (FILGRASTIM) [Concomitant]
  12. ANTIBIOTICS (ANTIBIOTICS) [Concomitant]

REACTIONS (8)
  - CUSHINGOID [None]
  - DIABETES MELLITUS [None]
  - DRUG INEFFECTIVE [None]
  - HAEMOGLOBIN DECREASED [None]
  - PEPTIC ULCER PERFORATION [None]
  - PERITONITIS [None]
  - SKIN ULCER [None]
  - WOUND DEHISCENCE [None]
